FAERS Safety Report 4682019-9 (Version None)
Quarter: 2005Q2

REPORT INFORMATION
  Report Type: 
  Country: None (occurrence: None)
  Receive Date: 20050606
  Receipt Date: 20050525
  Transmission Date: 20051028
  Serious: Yes (Other)
  Sender: FDA-Public Use
  Company Number: US-JNJFOC-20050203915

PATIENT
  Sex: Female
  Weight: 77.11 kg

DRUGS (16)
  1. REMICADE [Suspect]
     Route: 042
  2. REMICADE [Suspect]
     Indication: RHEUMATOID ARTHRITIS
     Route: 042
  3. MTX [Concomitant]
     Indication: RHEUMATOID ARTHRITIS
  4. FORTE [Concomitant]
     Indication: OSTEOPOROSIS
  5. LIPITOR [Concomitant]
  6. PREVACID [Concomitant]
     Indication: DYSPHAGIA
  7. FOLIC ACID [Concomitant]
     Indication: RHEUMATOID ARTHRITIS
  8. CENTRUM [Concomitant]
  9. CENTRUM [Concomitant]
  10. CALCIUM GLUCONATE [Concomitant]
  11. MAGNESIUM [Concomitant]
  12. ZERTEC [Concomitant]
  13. ADVAIR DISKUS 100/50 [Concomitant]
  14. ADVAIR DISKUS 100/50 [Concomitant]
  15. FLONASE [Concomitant]
  16. FRICEDONE [Concomitant]

REACTIONS (3)
  - ENDODONTIC PROCEDURE [None]
  - KNEE ARTHROPLASTY [None]
  - TOOTH EXTRACTION [None]
